FAERS Safety Report 7958738-5 (Version None)
Quarter: 2011Q4

REPORT INFORMATION
  Report Type: 
  Country: None (occurrence: None)
  Receive Date: 20111206
  Receipt Date: 20111124
  Transmission Date: 20120403
  Serious: Yes (Other)
  Sender: FDA-Public Use
  Company Number: CA-JNJFOC-20111008642

PATIENT
  Sex: Female
  Weight: 43.5 kg

DRUGS (3)
  1. REMICADE [Suspect]
     Indication: CROHN'S DISEASE
     Dosage: 49 INFUSIONS
     Route: 042
  2. CIPROFLOXACIN [Concomitant]
  3. FLAGYL [Concomitant]

REACTIONS (2)
  - CHOLELITHIASIS [None]
  - BLOOD AMYLASE INCREASED [None]
